FAERS Safety Report 7771959-X (Version None)
Quarter: 2011Q3

REPORT INFORMATION
  Report Type: 
  Country: None (occurrence: None)
  Receive Date: 20110922
  Receipt Date: 20100330
  Transmission Date: 20111222
  Serious: No
  Sender: FDA-Public Use
  Company Number: US-ASTRAZENECA-2006UW05168

PATIENT
  Age: 638 Month
  Sex: Female
  Weight: 106.6 kg

DRUGS (23)
  1. SEROQUEL [Suspect]
     Dosage: 25-50 MG
     Route: 048
     Dates: start: 20040707
  2. SEROQUEL [Suspect]
     Dosage: 25 MG TK TWO TS PO QHS
     Route: 048
     Dates: start: 20050507
  3. RISPERDAL [Suspect]
     Route: 065
     Dates: start: 20050701, end: 20050801
  4. DEPAKOTE [Concomitant]
     Dates: start: 20090101
  5. PROCHLORPERAZINE [Concomitant]
     Indication: NAUSEA
     Dosage: 10 MG TK 1 T Q 6 H
     Dates: start: 20050603
  6. SEROQUEL [Suspect]
     Indication: BIPOLAR DISORDER
     Dosage: 25-50 MG
     Route: 048
     Dates: start: 20040601, end: 20050801
  7. SEROQUEL [Suspect]
     Dosage: 25-50 MG
     Route: 048
     Dates: start: 20040707
  8. HALDOL [Concomitant]
     Indication: BIPOLAR I DISORDER
     Dosage: 4-6 MG
     Route: 048
     Dates: start: 19810101, end: 20050801
  9. HALDOL [Concomitant]
     Dates: start: 19830101
  10. SEROQUEL [Suspect]
     Dosage: 25 MG TK TWO TS PO QHS
     Route: 048
     Dates: start: 20050507
  11. SEROQUEL [Suspect]
     Dosage: 25 MG TK TWO TS PO QHS
     Route: 048
     Dates: start: 20050507
  12. SEROQUEL [Suspect]
     Indication: BIPOLAR I DISORDER
     Dosage: 25-50 MG
     Route: 048
     Dates: start: 20040601, end: 20050801
  13. SEROQUEL [Suspect]
     Dosage: 25-50 MG
     Route: 048
     Dates: start: 20040707
  14. LITHOBID [Concomitant]
     Indication: BIPOLAR I DISORDER
     Dosage: 100-1200 MG
     Route: 048
     Dates: start: 19810101
  15. SEROQUEL [Suspect]
     Dosage: 25-50 MG
     Route: 048
     Dates: start: 20040707
  16. RISPERDAL [Suspect]
     Indication: BIPOLAR DISORDER
     Dosage: 1 MG BID 2 MG AT BEDTIME
     Route: 048
     Dates: start: 20050729
  17. HALDOL [Concomitant]
     Indication: BIPOLAR DISORDER
     Dosage: 4-6 MG
     Route: 048
     Dates: start: 19810101, end: 20050801
  18. SEROQUEL [Suspect]
     Indication: INSOMNIA
     Dosage: 25-50 MG
     Route: 048
     Dates: start: 20040601, end: 20050801
  19. SEROQUEL [Suspect]
     Dosage: 25 MG TK TWO TS PO QHS
     Route: 048
     Dates: start: 20050507
  20. LITHOBID [Concomitant]
     Indication: BIPOLAR DISORDER
     Dosage: 100-1200 MG
     Route: 048
     Dates: start: 19810101
  21. LISINOPRIL [Concomitant]
     Dosage: 20-40 MG
     Route: 048
     Dates: start: 20051208
  22. SEROQUEL [Suspect]
     Indication: ANXIETY
     Dosage: 25-50 MG
     Route: 048
     Dates: start: 20040601, end: 20050801
  23. HALDOL [Concomitant]
     Dates: start: 19830101

REACTIONS (6)
  - MICROALBUMINURIA [None]
  - BLOOD GLUCOSE INCREASED [None]
  - TYPE 2 DIABETES MELLITUS [None]
  - DIABETES MELLITUS INADEQUATE CONTROL [None]
  - DIABETES MELLITUS [None]
  - RENAL DISORDER [None]
